FAERS Safety Report 4349110-8 (Version None)
Quarter: 2004Q2

REPORT INFORMATION
  Report Type: 
  Country: None (occurrence: None)
  Receive Date: 20040427
  Receipt Date: 20040427
  Transmission Date: 20050107
  Serious: Yes (Hospitalization)
  Sender: FDA-Public Use
  Company Number: None

PATIENT
  Age: 73 Year
  Sex: Male
  Weight: 73.4827 kg

DRUGS (1)
  1. DOCETAXEL 75 MG [Suspect]
     Indication: LUNG NEOPLASM MALIGNANT
     Dosage: 139 MG 1 HOUR IV
     Route: 042
     Dates: start: 20040218, end: 20040310

REACTIONS (3)
  - CEREBROVASCULAR ACCIDENT [None]
  - COMA [None]
  - MYOCARDIAL INFARCTION [None]
